FAERS Safety Report 18389932 (Version 1)
Quarter: 2020Q4

REPORT INFORMATION
  Report Type: Spontaneous
  Country: US (occurrence: US)
  Receive Date: 20201015
  Receipt Date: 20201015
  Transmission Date: 20210114
  Serious: No
  Sender: FDA-Public Use
  Company Number: US-OPTINOSE US, INC-2020OPT000580

PATIENT
  Age: 72 Year
  Sex: Male

DRUGS (3)
  1. XHANCE [Suspect]
     Active Substance: FLUTICASONE PROPIONATE
     Indication: ACUTE SINUSITIS
     Route: 045
     Dates: start: 20200219
  2. XHANCE [Suspect]
     Active Substance: FLUTICASONE PROPIONATE
     Route: 045
     Dates: start: 20200717
  3. ELIQUIS [Concomitant]
     Active Substance: APIXABAN
     Indication: PRODUCT USED FOR UNKNOWN INDICATION
     Route: 065

REACTIONS (5)
  - Device breakage [Unknown]
  - Product container issue [Unknown]
  - Wound haemorrhage [Recovered/Resolved]
  - Product use in unapproved indication [Unknown]
  - Skin laceration [Unknown]

NARRATIVE: CASE EVENT DATE: 20200219
